FAERS Safety Report 19251125 (Version 1)
Quarter: 2021Q2

REPORT INFORMATION
  Report Type: Spontaneous
  Country: GB (occurrence: GB)
  Receive Date: 20210512
  Receipt Date: 20210512
  Transmission Date: 20210717
  Serious: Yes (Other)
  Sender: FDA-Public Use
  Company Number: GB-MYLANLABS-2021M1027422

PATIENT
  Age: 66 Year
  Sex: Male
  Weight: 107 kg

DRUGS (44)
  1. CITALOPRAM [Concomitant]
     Active Substance: CITALOPRAM HYDROBROMIDE
  2. COLECALCIFEROL [Concomitant]
     Active Substance: CHOLECALCIFEROL
  3. DOXAZOSIN [Concomitant]
     Active Substance: DOXAZOSIN MESYLATE
  4. FENOFIBRATE. [Concomitant]
     Active Substance: FENOFIBRATE
  5. PSYLLIUM                           /00029101/ [Concomitant]
     Active Substance: HERBALS\PLANTAGO OVATA LEAF
  6. SALBUTAMOL [Concomitant]
     Active Substance: ALBUTEROL
  7. UNIPHYLLIN CONTINUS [Concomitant]
     Active Substance: THEOPHYLLINE ANHYDROUS
  8. ACYCLOVIR                          /00587301/ [Concomitant]
     Active Substance: ACYCLOVIR
  9. EZETIMIBE. [Concomitant]
     Active Substance: EZETIMIBE
  10. FOSTAIR [Concomitant]
     Active Substance: BECLOMETHASONE\FORMOTEROL
  11. MIRABEGRON [Concomitant]
     Active Substance: MIRABEGRON
  12. VIRAMUNE [Concomitant]
     Active Substance: NEVIRAPINE
  13. ALENDRONIC ACID [Concomitant]
     Active Substance: ALENDRONIC ACID
  14. DESCOVY [Concomitant]
     Active Substance: EMTRICITABINE\TENOFOVIR ALAFENAMIDE FUMARATE
  15. LACTULOSE. [Concomitant]
     Active Substance: LACTULOSE
  16. PROCHLORPERAZINE. [Concomitant]
     Active Substance: PROCHLORPERAZINE
  17. SPIRIVA [Concomitant]
     Active Substance: TIOTROPIUM BROMIDE MONOHYDRATE
  18. ARIPIPRAZOLE. [Suspect]
     Active Substance: ARIPIPRAZOLE
     Indication: PSYCHOTIC DISORDER
     Dosage: 5 MILLIGRAM, HS
     Route: 048
     Dates: start: 20210319, end: 20210419
  19. ALLOPURINOL. [Concomitant]
     Active Substance: ALLOPURINOL
  20. ASPIRIN                            /00002701/ [Concomitant]
     Active Substance: ASPIRIN
  21. FLUCONAZOLE. [Concomitant]
     Active Substance: FLUCONAZOLE
  22. PREDNISOLONE. [Concomitant]
     Active Substance: PREDNISOLONE
  23. VENTOLIN [Concomitant]
     Active Substance: ALBUTEROL SULFATE
  24. ATORVASTATIN [Concomitant]
     Active Substance: ATORVASTATIN
  25. CACIT                              /00944201/ [Concomitant]
     Active Substance: CALCIUM CARBONATE\CHOLECALCIFEROL
  26. CAVERJECT [Concomitant]
     Active Substance: ALPROSTADIL
  27. CETIRIZINE [Concomitant]
     Active Substance: CETIRIZINE HYDROCHLORIDE
  28. DOXYCYCLINE. [Concomitant]
     Active Substance: DOXYCYCLINE
  29. GABAPENTIN. [Concomitant]
     Active Substance: GABAPENTIN
  30. GTN [Concomitant]
     Active Substance: NITROGLYCERIN
  31. MST CONTINUS [Concomitant]
     Active Substance: MORPHINE SULFATE
  32. PANTOPRAZOLE [Concomitant]
     Active Substance: PANTOPRAZOLE
  33. ZOPICLONE [Concomitant]
     Active Substance: ZOPICLONE
  34. FLURBIPROFEN. [Concomitant]
     Active Substance: FLURBIPROFEN
  35. NACSYS [Concomitant]
  36. NYSTAN [Concomitant]
     Active Substance: NYSTATIN
  37. SENNA                              /00142201/ [Concomitant]
     Active Substance: SENNA LEAF
  38. SODIUM PICOSULFATE [Concomitant]
     Active Substance: SODIUM PICOSULFATE
  39. TAMSULOSIN [Concomitant]
     Active Substance: TAMSULOSIN
  40. VALERIAN ROOT                      /01561601/ [Concomitant]
     Active Substance: VALERIAN
  41. VALSARTAN. [Concomitant]
     Active Substance: VALSARTAN
  42. FUROSEMIDE. [Concomitant]
     Active Substance: FUROSEMIDE
  43. CLOPIDOGREL [Concomitant]
     Active Substance: CLOPIDOGREL BISULFATE
  44. EPHEDRINE. [Concomitant]
     Active Substance: EPHEDRINE

REACTIONS (2)
  - Dystonia [Not Recovered/Not Resolved]
  - Tardive dyskinesia [Not Recovered/Not Resolved]

NARRATIVE: CASE EVENT DATE: 20210412
